FAERS Safety Report 5866470-7 (Version None)
Quarter: 2008Q3

REPORT INFORMATION
  Report Type: 
  Country: None (occurrence: None)
  Receive Date: 20080902
  Receipt Date: 20080825
  Transmission Date: 20090109
  Serious: Yes (Other)
  Sender: FDA-Public Use
  Company Number: PHEH2008US05315

PATIENT
  Sex: Male
  Weight: 67.574 kg

DRUGS (9)
  1. BENAZEPRIL HYDROCHLORIDE [Suspect]
  2. HYDROCHLOROTHIAZIDE [Suspect]
     Dosage: 25 MG, QD
     Route: 048
     Dates: start: 20070111, end: 20080516
  3. FLOMAX [Concomitant]
     Dosage: 0.4MG, TWO DAILY
     Route: 048
     Dates: start: 20070111
  4. PROSCAR [Concomitant]
     Dosage: 5 MG, QD
     Route: 048
     Dates: start: 20070111
  5. GLUCOSAMINE [Concomitant]
  6. VITAMIN TAB [Concomitant]
  7. ATENOLOL [Concomitant]
     Dosage: 1/2 TAB DAILY
     Route: 048
     Dates: start: 20070113
  8. KLOR-CON [Concomitant]
     Dosage: 20 MEQ, QD
     Route: 048
     Dates: start: 20070111
  9. SAW PALMETTO [Concomitant]
     Dosage: 450 MG, QD
     Route: 048
     Dates: start: 20070111

REACTIONS (4)
  - AMNESIA [None]
  - COUGH [None]
  - HEART RATE INCREASED [None]
  - HEART RATE IRREGULAR [None]
